FAERS Safety Report 23228971 (Version 1)
Quarter: 2023Q4

REPORT INFORMATION
  Report Type: Spontaneous
  Country: US (occurrence: US)
  Receive Date: 20231126
  Receipt Date: 20231126
  Transmission Date: 20240109
  Serious: Yes (Hospitalization, Other)
  Sender: FDA-Public Use
  Company Number: US-INSUD PHARMA-2311US08160

PATIENT

DRUGS (5)
  1. TESTOSTERONE [Suspect]
     Active Substance: TESTOSTERONE
     Indication: Product used for unknown indication
     Dosage: 500 MILLIGRAM, WEEKLY
     Route: 030
  2. TESTOSTERONE [Suspect]
     Active Substance: TESTOSTERONE
     Dosage: PREVIOUS INTRAMUSCULAR AND ORAL TESTOSTERONE USE FOR TEN YEARS
     Route: 065
  3. WARFARIN [Suspect]
     Active Substance: WARFARIN
     Indication: Portal vein thrombosis
  4. WARFARIN [Suspect]
     Active Substance: WARFARIN
     Indication: Splenic vein thrombosis
  5. WARFARIN [Suspect]
     Active Substance: WARFARIN
     Indication: Mesenteric vein thrombosis

REACTIONS (8)
  - Primary adrenal insufficiency [Unknown]
  - Adrenal haemorrhage [Unknown]
  - International normalised ratio increased [Unknown]
  - Portosplenomesenteric venous thrombosis [Unknown]
  - Abdominal pain [Unknown]
  - Abdominal distension [Unknown]
  - Hypercoagulation [Unknown]
  - Intentional product misuse [Unknown]
